FAERS Safety Report 5006826-8 (Version None)
Quarter: 2006Q2

REPORT INFORMATION
  Report Type: 
  Country: None (occurrence: None)
  Receive Date: 20060516
  Receipt Date: 20060502
  Transmission Date: 20061013
  Serious: Yes (Life-Threatening, Hospitalization)
  Sender: FDA-Public Use
  Company Number: 2006RR-02166

PATIENT
  Age: 25 Year
  Sex: Male

DRUGS (1)
  1. RANITIDINE [Suspect]
     Indication: DYSPEPSIA
     Dosage: 150 MG, BID, ORAL
     Route: 048
     Dates: start: 20060221, end: 20060222

REACTIONS (1)
  - FACE OEDEMA [None]
